FAERS Safety Report 4973495-2 (Version None)
Quarter: 2006Q2

REPORT INFORMATION
  Report Type: 
  Country: None (occurrence: None)
  Receive Date: 20060413
  Receipt Date: 20060413
  Transmission Date: 20061013
  Serious: Yes (Life-Threatening, Hospitalization, Disabling)
  Sender: FDA-Public Use
  Company Number: None

PATIENT
  Age: 53 Year
  Sex: Male
  Weight: 90.7194 kg

DRUGS (2)
  1. LIPITOR [Suspect]
     Indication: BLOOD CHOLESTEROL INCREASED
     Dates: start: 20060309, end: 20060310
  2. LIPITOR [Suspect]
     Indication: BLOOD CHOLESTEROL INCREASED
     Dates: start: 20060311, end: 20060311

REACTIONS (9)
  - ABDOMINAL PAIN [None]
  - DEHYDRATION [None]
  - DRUG DOSE OMISSION [None]
  - FEELING COLD [None]
  - HOT FLUSH [None]
  - NERVOUSNESS [None]
  - SMALL INTESTINAL OBSTRUCTION [None]
  - TREATMENT NONCOMPLIANCE [None]
  - VOMITING [None]
